FAERS Safety Report 5764490-4 (Version None)
Quarter: 2008Q2

REPORT INFORMATION
  Report Type: 
  Country: None (occurrence: None)
  Receive Date: 20080605
  Receipt Date: 20080523
  Transmission Date: 20081010
  Serious: Yes (Other)
  Sender: FDA-Public Use
  Company Number: 2008013839

PATIENT
  Sex: Male

DRUGS (2)
  1. LISTERINE ANTISEPTIC MOUTHWASH (METNHOL, METHYL SALICYLATE, EUCALYPTOL [Suspect]
     Dosage: ORAL
     Route: 048
  2. STOMATOLOGICALS, MOUTH PREPARATIONS (STOMATOLOGICALS, MOUTH PREPARATIO [Suspect]
     Dosage: ORAL
     Route: 048

REACTIONS (1)
  - BLOOD ALCOHOL INCREASED [None]
